FAERS Safety Report 6790737-1 (Version None)
Quarter: 2010Q2

REPORT INFORMATION
  Report Type: 
  Country: None (occurrence: None)
  Receive Date: 20100520
  Receipt Date: 20090514
  Transmission Date: 20101027
  Serious: Yes (Other)
  Sender: FDA-Public Use
  Company Number: 2008060862

PATIENT
  Age: 66 Year
  Sex: Female

DRUGS (7)
  1. PROVERA [Suspect]
     Indication: HORMONE REPLACEMENT THERAPY
     Dosage: ORAL
     Route: 048
     Dates: start: 19820101, end: 20010101
  2. MEDROXYPROGESTERONE ACETATE [Suspect]
     Indication: HORMONE REPLACEMENT THERAPY
     Dosage: ORAL
     Route: 048
     Dates: start: 19950501, end: 20001201
  3. CONJUGATED ESTROGENS [Suspect]
     Indication: HORMONE REPLACEMENT THERAPY
     Dates: start: 19950501, end: 20001201
  4. PREMARIN [Suspect]
     Indication: HORMONE REPLACEMENT THERAPY
     Dates: start: 19820101, end: 20010101
  5. PREMPRO [Suspect]
     Indication: HORMONE REPLACEMENT THERAPY
     Dates: start: 20001201, end: 20010601
  6. SIMVASTATIN [Concomitant]
  7. BABYPRIN (ACETYLSALICYLIC ACID) [Concomitant]

REACTIONS (1)
  - BREAST CANCER FEMALE [None]
